FAERS Safety Report 9712013 (Version 2)
Quarter: 2013Q4

REPORT INFORMATION
  Report Type: Spontaneous
  Country: US (occurrence: US)
  Receive Date: 20131126
  Receipt Date: 20131126
  Transmission Date: 20140711
  Serious: No
  Sender: FDA-Public Use
  Company Number: US-BRISTOL-MYERS SQUIBB COMPANY-19128891

PATIENT
  Age: 55 Year
  Sex: Female
  Weight: 90.25 kg

DRUGS (3)
  1. BYDUREON 2MG SUSPENSION [Suspect]
     Indication: TYPE 2 DIABETES MELLITUS
     Dosage: 2 WEEKS AGO STOPPED
     Route: 058
     Dates: start: 201204
  2. MELOXICAM [Concomitant]
     Route: 048
  3. METHOCARBAMOL [Concomitant]
     Dosage: TID,PRN

REACTIONS (5)
  - Fall [Unknown]
  - Back pain [Unknown]
  - Glycosylated haemoglobin increased [Unknown]
  - Weight decreased [Unknown]
  - Blood glucose increased [Unknown]
